FAERS Safety Report 12863233 (Version 1)
Quarter: 2016Q4

REPORT INFORMATION
  Report Type: Spontaneous
  Country: GB (occurrence: GB)
  Receive Date: 20161019
  Receipt Date: 20161019
  Transmission Date: 20170207
  Serious: Yes (Hospitalization, Other)
  Sender: FDA-Public Use
  Company Number: GB-TEVA-702745ACC

PATIENT
  Age: 57 Year
  Sex: Female
  Weight: 66.67 kg

DRUGS (7)
  1. VENTOLIN [Concomitant]
     Active Substance: ALBUTEROL SULFATE
     Route: 055
  2. COCODAMOL [Concomitant]
     Active Substance: ACETAMINOPHEN\CODEINE PHOSPHATE
     Dosage: 8/500 AS REQUIRED (AT THE SAME TIME AS THE IBUPROFEN)
  3. PULMICORT TURBUHALER [Concomitant]
     Active Substance: BUDESONIDE
     Dosage: 2 DOSAGE FORMS DAILY; 400
     Route: 055
  4. FERROUS SULFATE. [Concomitant]
     Active Substance: FERROUS SULFATE
     Dosage: 325 MILLIGRAM DAILY;
  5. SEREVENT DISKUS [Concomitant]
     Active Substance: SALMETEROL XINAFOATE
     Dosage: 100 MICROGRAM DAILY;
  6. IBUPROFEN. [Suspect]
     Active Substance: IBUPROFEN
     Indication: CHEST INJURY
     Dosage: 1200 MILLIGRAM DAILY;
     Dates: end: 20160905
  7. LANSOPRAZOLE. [Concomitant]
     Active Substance: LANSOPRAZOLE
     Dosage: 15 MILLIGRAM DAILY;

REACTIONS (5)
  - Haemoglobin decreased [Recovering/Resolving]
  - Fatigue [Unknown]
  - Haematemesis [Unknown]
  - Dyspnoea exertional [Unknown]
  - Faeces discoloured [Unknown]

NARRATIVE: CASE EVENT DATE: 20160913
